FAERS Safety Report 4785211-8 (Version None)
Quarter: 2005Q3

REPORT INFORMATION
  Report Type: 
  Country: None (occurrence: None)
  Receive Date: 20050929
  Receipt Date: 20050919
  Transmission Date: 20060218
  Serious: Yes (Hospitalization)
  Sender: FDA-Public Use
  Company Number: 200511975BWH

PATIENT
  Age: 61 Year
  Sex: Male
  Weight: 99.7913 kg

DRUGS (6)
  1. AVELOX [Suspect]
     Indication: PLEURAL EFFUSION
     Dosage: SEE IMAGE
     Route: 048
     Dates: start: 20050604, end: 20050611
  2. AVELOX [Suspect]
     Indication: PNEUMONIA PRIMARY ATYPICAL
     Dosage: SEE IMAGE
     Route: 048
     Dates: start: 20050604, end: 20050611
  3. AVELOX [Suspect]
     Indication: PLEURAL EFFUSION
     Dosage: SEE IMAGE
     Route: 048
     Dates: start: 20050809, end: 20050818
  4. AVELOX [Suspect]
     Indication: PNEUMONIA PRIMARY ATYPICAL
     Dosage: SEE IMAGE
     Route: 048
     Dates: start: 20050809, end: 20050818
  5. ADVIL [Suspect]
     Indication: JOINT LIGAMENT RUPTURE
  6. ASPIRIN [Suspect]
     Indication: JOINT LIGAMENT RUPTURE

REACTIONS (21)
  - ALANINE AMINOTRANSFERASE INCREASED [None]
  - ANAEMIA [None]
  - ANGIOPATHY [None]
  - ASPARTATE AMINOTRANSFERASE INCREASED [None]
  - BILIRUBIN CONJUGATED INCREASED [None]
  - BLOOD ALKALINE PHOSPHATASE INCREASED [None]
  - BLOOD BILIRUBIN INCREASED [None]
  - CONDITION AGGRAVATED [None]
  - HAEMATOCRIT INCREASED [None]
  - HAEMOGLOBIN INCREASED [None]
  - JOINT SWELLING [None]
  - LOCALISED OEDEMA [None]
  - OEDEMA PERIPHERAL [None]
  - PLEURAL EFFUSION [None]
  - PNEUMONIA PRIMARY ATYPICAL [None]
  - RECTAL HAEMORRHAGE [None]
  - SERUM FERRITIN DECREASED [None]
  - SINUS CONGESTION [None]
  - STAPHYLOCOCCAL INFECTION [None]
  - TRANSFERRIN SATURATION DECREASED [None]
  - VEIN DISORDER [None]
